FAERS Safety Report 7609198-5 (Version None)
Quarter: 2011Q3

REPORT INFORMATION
  Report Type: 
  Country: None (occurrence: None)
  Receive Date: 20110714
  Receipt Date: 20110630
  Transmission Date: 20111222
  Serious: Yes (Other)
  Sender: FDA-Public Use
  Company Number: US-BAYER-2011-020334

PATIENT
  Age: 26 Year
  Sex: Female
  Weight: 73 kg

DRUGS (8)
  1. ADDERALL 10 [Concomitant]
     Indication: ATTENTION DEFICIT/HYPERACTIVITY DISORDER
  2. CELEXA [Concomitant]
     Indication: DEPRESSION
  3. RISPERDAL [Concomitant]
     Indication: DEPRESSION
  4. YAZ [Suspect]
     Indication: CONTRACEPTION
     Dosage: UNK
     Route: 048
     Dates: start: 20080801, end: 20090201
  5. RISPERDAL [Concomitant]
  6. CYMBALTA [Concomitant]
  7. ZANTAC [Concomitant]
  8. ELIXIR FOR SPASM [Concomitant]

REACTIONS (8)
  - VOMITING [None]
  - POST CHOLECYSTECTOMY SYNDROME [None]
  - PSYCHIATRIC SYMPTOM [None]
  - CHOLELITHIASIS [None]
  - ANXIETY [None]
  - ABDOMINAL PAIN [None]
  - GALLBLADDER NON-FUNCTIONING [None]
  - PAIN [None]
